FAERS Safety Report 8725310 (Version 2)
Quarter: 2012Q4

REPORT INFORMATION
  Report Type: 
  Country: SE (occurrence: SE)
  Receive Date: 20120815
  Receipt Date: 20121018
  Transmission Date: 20130627
  Serious: Yes (Other)
  Sender: FDA-Public Use
  Company Number: SE-PFIZER INC-2012194190

PATIENT
  Age: 49 Year
  Sex: Female

DRUGS (2)
  1. TOVIAZ [Suspect]
     Indication: URINARY INCONTINENCE
     Dosage: 8 mg, 1x/day
     Dates: start: 20120215, end: 201203
  2. LERGIGAN [Concomitant]
     Dosage: 25 mg, UNK

REACTIONS (7)
  - Suicidal ideation [Recovered/Resolved]
  - Mental impairment [Recovered/Resolved]
  - Hallucination [Recovered/Resolved]
  - Confusional state [Recovered/Resolved]
  - Palpitations [Recovered/Resolved]
  - Cough [Recovered/Resolved]
  - Drug interaction [Recovered/Resolved]
